FAERS Safety Report 8281670-7 (Version None)
Quarter: 2012Q2

REPORT INFORMATION
  Report Type: 
  Country: None (occurrence: None)
  Receive Date: 20120413
  Receipt Date: 20120404
  Transmission Date: 20120825
  Serious: Yes (Other)
  Sender: FDA-Public Use
  Company Number: US-JNJFOC-20120402449

PATIENT
  Sex: Female
  Weight: 50.35 kg

DRUGS (4)
  1. ASACOL [Concomitant]
     Route: 065
  2. MERCAPTOPURINE [Concomitant]
     Route: 065
  3. PREDNISONE TAB [Concomitant]
     Route: 065
  4. REMICADE [Suspect]
     Indication: COLITIS ULCERATIVE
     Route: 042
     Dates: start: 20120314, end: 20120328

REACTIONS (8)
  - CHEST DISCOMFORT [None]
  - HYPOAESTHESIA [None]
  - INFUSION RELATED REACTION [None]
  - FLUSHING [None]
  - TREMOR [None]
  - OCULAR HYPERAEMIA [None]
  - RASH [None]
  - CHILLS [None]
